FAERS Safety Report 11443695 (Version 1)
Quarter: 2015Q3

REPORT INFORMATION
  Report Type: Spontaneous
  Country: US (occurrence: US)
  Receive Date: 20150901
  Receipt Date: 20150901
  Transmission Date: 20151125
  Serious: Yes (Other)
  Sender: FDA-Public Use
  Company Number: US-SPECTRUM PHARMACEUTICALS, INC.-14-Z-US-00106

PATIENT
  Age: 64 Year
  Sex: Female
  Weight: 78.91 kg

DRUGS (3)
  1. RITUXIMAB [Suspect]
     Active Substance: RITUXIMAB
     Indication: B-CELL LYMPHOMA
     Dosage: 465 MG, SINGLE
     Route: 065
     Dates: start: 20140506, end: 20140506
  2. ZEVALIN [Suspect]
     Active Substance: IBRITUMOMAB TIUXETAN
     Indication: B-CELL LYMPHOMA
     Dosage: 30.1 MCI, SINGLE
     Route: 042
     Dates: start: 20140506, end: 20140506
  3. RITUXIMAB [Suspect]
     Active Substance: RITUXIMAB
     Dosage: 460 MG, SINGLE
     Route: 065
     Dates: start: 20140429, end: 20140429

REACTIONS (1)
  - Thrombocytopenia [Recovering/Resolving]

NARRATIVE: CASE EVENT DATE: 20140611
